FAERS Safety Report 7066528-3 (Version None)
Quarter: 2010Q4

REPORT INFORMATION
  Report Type: 
  Country: None (occurrence: None)
  Receive Date: 20101027
  Receipt Date: 20100625
  Transmission Date: 20110411
  Serious: No
  Sender: FDA-Public Use
  Company Number: US-WYE-H14455510

PATIENT
  Sex: Female

DRUGS (2)
  1. PREMPRO [Suspect]
  2. PREFEST [Suspect]

REACTIONS (4)
  - ABDOMINAL PAIN UPPER [None]
  - NAUSEA [None]
  - NERVOUSNESS [None]
  - VOMITING [None]
